FAERS Safety Report 6888283-X (Version None)
Quarter: 2010Q3

REPORT INFORMATION
  Report Type: 
  Country: None (occurrence: None)
  Receive Date: 20100730
  Receipt Date: 20100726
  Transmission Date: 20110219
  Serious: Yes (Other)
  Sender: FDA-Public Use
  Company Number: US-B.I. PHARMACEUTICALS,INC./RIDGEFIELD-2010-DE-03935GD

PATIENT
  Sex: Male

DRUGS (3)
  1. CLONIDINE [Suspect]
     Indication: TOURETTE'S DISORDER
     Dosage: 0.025 UP TO 0.3 MG/D
  2. N-ACETYLCHOLINE [Concomitant]
     Indication: MEDICAL DIET
     Dosage: 600 MG
  3. ALPHA LIPOIC ACID [Concomitant]
     Indication: MEDICAL DIET
     Dosage: 250 MG

REACTIONS (3)
  - CONVULSION [None]
  - DYSKINESIA [None]
  - REBOUND EFFECT [None]
